FAERS Safety Report 4372106-7 (Version None)
Quarter: 2004Q2

REPORT INFORMATION
  Report Type: 
  Country: None (occurrence: None)
  Receive Date: 20040603
  Receipt Date: 20040603
  Transmission Date: 20050107
  Serious: Yes (Hospitalization)
  Sender: FDA-Public Use
  Company Number: None

PATIENT
  Age: 25 Year
  Sex: Male
  Weight: 78.7 kg

DRUGS (1)
  1. MESALAMINE [Suspect]
     Indication: INFLAMMATORY BOWEL DISEASE
     Dosage: ORAL
     Route: 048
     Dates: start: 20040209, end: 20040210

REACTIONS (2)
  - HAEMATOCHEZIA [None]
  - PANCREATITIS [None]
